FAERS Safety Report 8765681 (Version 1)
Quarter: 2012Q4

REPORT INFORMATION
  Report Type: Report from Study
  Country: CA (occurrence: CA)
  Receive Date: 20120904
  Receipt Date: 20120904
  Transmission Date: 20130627
  Serious: Yes (Other)
  Sender: FDA-Public Use
  Company Number: CA-JNJFOC-20120812773

PATIENT
  Age: 53 None
  Sex: Female
  Weight: 58.06 kg

DRUGS (1)
  1. REMICADE [Suspect]
     Indication: CROHN^S DISEASE
     Route: 042
     Dates: start: 2006

REACTIONS (2)
  - Pancreatitis [Unknown]
  - Acute sinusitis [Not Recovered/Not Resolved]
